FAERS Safety Report 11684588 (Version 5)
Quarter: 2016Q2

REPORT INFORMATION
  Report Type: Report from Study
  Country: US (occurrence: US)
  Receive Date: 20151029
  Receipt Date: 20160414
  Transmission Date: 20160815
  Serious: Yes (Death, Hospitalization, Other)
  Sender: FDA-Public Use
  Company Number: US-ACTELION-A-NJ2015-126271

PATIENT
  Age: 49 Year
  Sex: Female

DRUGS (4)
  1. VELETRI [Suspect]
     Active Substance: EPOPROSTENOL
     Indication: PULMONARY ARTERIAL HYPERTENSION
     Dosage: 36 NG/KG, PER MIN
     Route: 042
     Dates: start: 20121215, end: 20160202
  2. COUMADIN [Concomitant]
     Active Substance: WARFARIN SODIUM
  3. REVATIO [Concomitant]
     Active Substance: SILDENAFIL CITRATE
  4. LETAIRIS [Concomitant]
     Active Substance: AMBRISENTAN

REACTIONS (4)
  - Weight increased [Unknown]
  - Mechanical ventilation [Unknown]
  - Fluid retention [Unknown]
  - Death [Fatal]

NARRATIVE: CASE EVENT DATE: 20160202
